FAERS Safety Report 17927982 (Version 1)
Quarter: 2020Q2

REPORT INFORMATION
  Report Type: Report from Study
  Country: None (occurrence: US)
  Receive Date: 20200623
  Receipt Date: 20200623
  Transmission Date: 20200714
  Serious: Yes (Hospitalization)
  Sender: FDA-Public Use
  Company Number: US-ABBVIE-20K-163-3377133-00

PATIENT
  Sex: Female

DRUGS (1)
  1. HUMIRA [Suspect]
     Active Substance: ADALIMUMAB
     Indication: RHEUMATOID ARTHRITIS
     Dosage: CITRATE FREE
     Route: 058

REACTIONS (10)
  - Gastric haemorrhage [Unknown]
  - Respiratory disorder [Unknown]
  - Hypertension [Unknown]
  - Arthralgia [Unknown]
  - Atrial fibrillation [Unknown]
  - Infusion site bruising [Unknown]
  - Type 2 diabetes mellitus [Unknown]
  - Depression [Unknown]
  - Musculoskeletal pain [Unknown]
  - Pain in extremity [Unknown]
